FAERS Safety Report 8161662-9 (Version None)
Quarter: 2012Q1

REPORT INFORMATION
  Report Type: 
  Country: None (occurrence: None)
  Receive Date: 20120224
  Receipt Date: 20120221
  Transmission Date: 20120608
  Serious: Yes (Other)
  Sender: FDA-Public Use
  Company Number: DE-PFIZER INC-2012046182

PATIENT
  Sex: Male

DRUGS (4)
  1. BISOPROLOL FUMARATE [Concomitant]
     Dosage: 10 MG, UNK
     Dates: start: 20110101
  2. ATORVASTATIN CALCIUM [Suspect]
     Dosage: 10 MG, UNK
     Dates: start: 20091101
  3. BISOPROLOL FUMARATE [Concomitant]
     Dosage: UNK
  4. ATORVASTATIN CALCIUM [Suspect]
     Dosage: 5 MG, UNK
     Dates: start: 19980101

REACTIONS (3)
  - CORONARY ARTERY STENOSIS [None]
  - LOW DENSITY LIPOPROTEIN INCREASED [None]
  - BLOOD CHOLESTEROL INCREASED [None]
